FAERS Safety Report 10043380 (Version 1)
Quarter: 2014Q1

REPORT INFORMATION
  Report Type: Spontaneous
  Country: IT (occurrence: IT)
  Receive Date: 20140328
  Receipt Date: 20140328
  Transmission Date: 20141002
  Serious: Yes (Other)
  Sender: FDA-Public Use
  Company Number: IT-RANBAXY-2014RR-79276

PATIENT
  Age: 78 Year
  Sex: Female

DRUGS (1)
  1. AMOXICILLIN/CLAVULANIC ACID [Suspect]
     Indication: LOCALISED INFECTION
     Dosage: 2 DF, DAILY
     Route: 048
     Dates: start: 20140301, end: 20140302

REACTIONS (1)
  - Erythema [Recovering/Resolving]
